FAERS Safety Report 8984143 (Version 1)
Quarter: 2012Q4

REPORT INFORMATION
  Report Type: Spontaneous
  Country: GB (occurrence: None)
  Receive Date: 20121212
  Receipt Date: 20121212
  Transmission Date: 20130627
  Serious: Yes (Death, Hospitalization)
  Sender: FDA-Public Use
  Company Number: IMP_06104_2012

PATIENT
  Age: 70 Year
  Sex: Male

DRUGS (1)
  1. METFORMIN (METFORMIN) [Suspect]
     Indication: TYPE 2 DIABETES MELLITUS
     Route: 048

REACTIONS (9)
  - Lactic acidosis [None]
  - Overdose [None]
  - Suicide attempt [None]
  - Vomiting [None]
  - Agitation [None]
  - Confusional state [None]
  - Abdominal pain [None]
  - Blood pressure systolic increased [None]
  - Respiratory rate increased [None]
